FAERS Safety Report 14903771 (Version 1)
Quarter: 2018Q2

REPORT INFORMATION
  Report Type: Spontaneous
  Country: US (occurrence: US)
  Receive Date: 20180430
  Receipt Date: 20180430
  Transmission Date: 20180711
  Serious: No
  Sender: FDA-Public Use
  Company Number: None

PATIENT
  Age: 40 Year
  Sex: Female

DRUGS (3)
  1. MAVYRET [Suspect]
     Active Substance: GLECAPREVIR\PIBRENTASVIR
     Indication: HEPATITIS C
     Dosage: 3 TABLETS DAILY ORAL
     Route: 048
     Dates: start: 20180426, end: 20180429
  2. BUPRENORPHINE. [Concomitant]
     Active Substance: BUPRENORPHINE
  3. ADDERALL [Concomitant]
     Active Substance: AMPHETAMINE ASPARTATE\AMPHETAMINE SULFATE\DEXTROAMPHETAMINE SACCHARATE\DEXTROAMPHETAMINE SULFATE

REACTIONS (4)
  - Gastric disorder [None]
  - Malaise [None]
  - Influenza [None]
  - Apparent death [None]

NARRATIVE: CASE EVENT DATE: 20180430
